FAERS Safety Report 25246567 (Version 1)
Quarter: 2025Q2

REPORT INFORMATION
  Report Type: Spontaneous
  Country: CN (occurrence: CN)
  Receive Date: 20250428
  Receipt Date: 20250428
  Transmission Date: 20250717
  Serious: Yes (Death, Life-Threatening)
  Sender: ACCORD
  Company Number: None

PATIENT
  Age: 59 Year
  Sex: Male
  Weight: 60 kg

DRUGS (3)
  1. TRASTUZUMAB [Suspect]
     Active Substance: TRASTUZUMAB
     Indication: Metastatic salivary gland cancer
     Dosage: STRENGTH: 60 MG, IV DRIP
     Route: 042
     Dates: start: 20250324, end: 20250324
  2. PIPERACILLIN SODIUM\TAZOBACTAM SODIUM [Concomitant]
     Active Substance: PIPERACILLIN SODIUM\TAZOBACTAM SODIUM
     Indication: Anti-infective therapy
     Route: 042
     Dates: start: 20250404, end: 20250404
  3. PIPERACILLIN SODIUM\TAZOBACTAM SODIUM [Concomitant]
     Active Substance: PIPERACILLIN SODIUM\TAZOBACTAM SODIUM
     Indication: Anti-infective therapy
     Route: 042
     Dates: start: 20250405, end: 20250411

REACTIONS (7)
  - Product use in unapproved indication [Fatal]
  - Multiple organ dysfunction syndrome [Fatal]
  - Electrolyte imbalance [Fatal]
  - Metastatic salivary gland cancer [Fatal]
  - Salivary gland cancer recurrent [Fatal]
  - Respiratory failure [Fatal]
  - Platelet count decreased [Unknown]

NARRATIVE: CASE EVENT DATE: 20250411
